FAERS Safety Report 17940647 (Version 2)
Quarter: 2020Q4

REPORT INFORMATION
  Report Type: Report from Study
  Country: BR (occurrence: BR)
  Receive Date: 20200624
  Receipt Date: 20201013
  Transmission Date: 20210113
  Serious: Yes (Other)
  Sender: FDA-Public Use
  Company Number: BR-JNJFOC-20200147875

PATIENT
  Age: 46 Year
  Sex: Female
  Weight: 32.7 kg

DRUGS (2)
  1. STELARA [Suspect]
     Active Substance: USTEKINUMAB
     Route: 058
     Dates: start: 20190826
  2. STELARA [Suspect]
     Active Substance: USTEKINUMAB
     Indication: PSORIASIS
     Route: 058
     Dates: start: 201808

REACTIONS (8)
  - Parosmia [Unknown]
  - Atrophy [Unknown]
  - Diarrhoea [Unknown]
  - Bedridden [Unknown]
  - Psoriasis [Recovering/Resolving]
  - Dysstasia [Unknown]
  - Weight decreased [Unknown]
  - Inappropriate schedule of product administration [Unknown]

NARRATIVE: CASE EVENT DATE: 201912
